FAERS Safety Report 13519997 (Version 1)
Quarter: 2017Q2

REPORT INFORMATION
  Report Type: Report from Study
  Country: None (occurrence: GB)
  Receive Date: 20170506
  Receipt Date: 20170506
  Transmission Date: 20170830
  Serious: Yes (Other)
  Sender: FDA-Public Use
  Company Number: GB-ABBVIE-17K-167-1963264-00

PATIENT
  Age: 21 Year
  Sex: Male

DRUGS (1)
  1. HUMIRA [Suspect]
     Active Substance: ADALIMUMAB
     Indication: CROHN^S DISEASE
     Route: 058

REACTIONS (5)
  - Night sweats [Unknown]
  - Pain in extremity [Unknown]
  - Rash macular [Unknown]
  - Visual impairment [Unknown]
  - Limb mass [Unknown]

NARRATIVE: CASE EVENT DATE: 2017
